FAERS Safety Report 6326462-0 (Version None)
Quarter: 2009Q3

REPORT INFORMATION
  Report Type: 
  Country: None (occurrence: None)
  Receive Date: 20090825
  Receipt Date: 20090812
  Transmission Date: 20100115
  Serious: Yes (Other)
  Sender: FDA-Public Use
  Company Number: GB-RANBAXY-2009RR-26461

PATIENT
  Age: 43 Year
  Sex: Male
  Weight: 85.9 kg

DRUGS (2)
  1. MELOXICAM [Suspect]
     Indication: MUSCULOSKELETAL PAIN
     Dosage: 7.5 MG, UNK
     Route: 048
     Dates: start: 20090727, end: 20090727
  2. VENTOLIN [Concomitant]
     Indication: ASTHMA
     Dosage: 100 UG, PRN
     Route: 055
     Dates: start: 19970101

REACTIONS (3)
  - PRURITUS [None]
  - URTICARIA [None]
  - WHEEZING [None]
